FAERS Safety Report 6315605-0 (Version None)
Quarter: 2009Q3

REPORT INFORMATION
  Report Type: 
  Country: None (occurrence: None)
  Receive Date: 20090818
  Receipt Date: 20090813
  Transmission Date: 20100115
  Serious: Yes (Other)
  Sender: FDA-Public Use
  Company Number: 2009SP020105

PATIENT
  Age: 63 Year
  Sex: Male
  Weight: 85 kg

DRUGS (6)
  1. PEG-INTRON (PEGINTERFEON ALFA-2B) [Suspect]
     Indication: HEPATITIS C
     Dosage: 45 MCG;QW;SC
     Route: 058
     Dates: start: 20070621
  2. RIBAVIRIN [Suspect]
     Indication: HEPATITIS C
     Dosage: 1000 MG;QD;PO
     Route: 048
     Dates: start: 20070621
  3. AERIUS (CON.) [Concomitant]
  4. DEXERYL (CON.) [Concomitant]
  5. DIPROSONE (CON.) [Concomitant]
  6. ATARAX (CON.) [Concomitant]

REACTIONS (5)
  - ANXIETY [None]
  - DERMATITIS [None]
  - PHOTOSENSITIVITY REACTION [None]
  - PRURITUS [None]
  - SKIN HYPERPIGMENTATION [None]
